FAERS Safety Report 20361641 (Version 3)
Quarter: 2022Q4

REPORT INFORMATION
  Report Type: Report from Study
  Country: KW (occurrence: KW)
  Receive Date: 20220121
  Receipt Date: 20221010
  Transmission Date: 20230113
  Serious: Yes (Hospitalization, Other)
  Sender: FDA-Public Use
  Company Number: KW-NOVARTISPH-NVSC2021KW237793

PATIENT
  Age: 0 Year
  Sex: Female
  Weight: 3.7 kg

DRUGS (6)
  1. GILENYA [Suspect]
     Active Substance: FINGOLIMOD HYDROCHLORIDE
     Indication: Foetal exposure during pregnancy
     Dosage: MATERNAL DOSE: 0.5 MG, QD
     Route: 064
  2. FOLIC ACID [Concomitant]
     Active Substance: FOLIC ACID
     Indication: Foetal exposure during pregnancy
     Dosage: MATERNAL DOSE: 5 MG, QD
     Route: 064
  3. FOLIC ACID [Concomitant]
     Active Substance: FOLIC ACID
     Dosage: MATERNAL DOSE: QD
     Route: 064
  4. VITAMIN D [Concomitant]
     Active Substance: VITAMIN D NOS
     Indication: Foetal exposure during pregnancy
     Dosage: MATERNAL DOSE: QW
     Route: 064
  5. CALCIUM PLUS [Concomitant]
     Indication: Foetal exposure during pregnancy
     Dosage: MATERNAL DOSE: QD
     Route: 064
  6. IVIGLOB EX [Concomitant]
     Active Substance: HUMAN IMMUNOGLOBULIN G
     Indication: Foetal exposure during pregnancy
     Dosage: UNK
     Route: 064

REACTIONS (7)
  - Bronchitis [Recovered/Resolved]
  - Cough [Recovered/Resolved]
  - Rhinorrhoea [Recovered/Resolved]
  - Dyspnoea [Recovered/Resolved]
  - Neonatal respiratory distress [Unknown]
  - Normal newborn [Unknown]
  - Foetal exposure during pregnancy [Unknown]

NARRATIVE: CASE EVENT DATE: 20210916
